FAERS Safety Report 5113902-8 (Version None)
Quarter: 2006Q3

REPORT INFORMATION
  Report Type: 
  Country: None (occurrence: None)
  Receive Date: 20060925
  Receipt Date: 19950124
  Transmission Date: 20061208
  Serious: Yes (Hospitalization)
  Sender: FDA-Public Use
  Company Number: NO-ROCHE-950194009001

PATIENT
  Age: 27 Year
  Sex: Male
  Weight: 57 kg

DRUGS (2)
  1. INTERFERON ALFA-2A [Suspect]
     Indication: MULTIPLE SCLEROSIS
     Route: 058
     Dates: start: 19941212
  2. GADOPENTETIC ACID [Concomitant]
     Route: 065
     Dates: start: 19941212, end: 19941212

REACTIONS (2)
  - DISEASE PROGRESSION [None]
  - MULTIPLE SCLEROSIS RELAPSE [None]
